FAERS Safety Report 25947968 (Version 1)
Quarter: 2025Q4

REPORT INFORMATION
  Report Type: Spontaneous
  Country: US (occurrence: None)
  Receive Date: 20251022
  Receipt Date: 20251022
  Transmission Date: 20260117
  Serious: Yes (Hospitalization)
  Sender: FDA-CTU
  Company Number: None

PATIENT
  Age: 81 Year
  Sex: Male
  Weight: 114.3 kg

DRUGS (4)
  1. DARATUMUMAB\HYALURONIDASE-FIHJ [Suspect]
     Active Substance: DARATUMUMAB\HYALURONIDASE-FIHJ
     Dates: end: 20250923
  2. DEXAMETHASONE [Suspect]
     Active Substance: DEXAMETHASONE
     Dosage: OTHER QUANTITY : 4 MG DOSE PROVIDE WAS FOR LAST CYCLE, WILL UPDATE PRIOR TO FINAL REPORT;?
     Dates: end: 20250922
  3. LENALIDOMIDE [Suspect]
     Active Substance: LENALIDOMIDE
     Dosage: OTHER QUANTITY : 105 MG TOTAL DOSE FOR LAST CYCLE WAS 5 MG DAILY FOR 21 OF 28 DAYS; WILL CALCULATE TOTAL DOSE ON STUD;?
     Dates: end: 20250922
  4. VELCADE [Suspect]
     Active Substance: BORTEZOMIB
     Dosage: OTHER QUANTITY : 81 MG DURING 9 CYCLES OF CONSOLIDATION;?
     Dates: end: 20230919

REACTIONS (2)
  - Hip arthroplasty [None]
  - Treatment delayed [None]

NARRATIVE: CASE EVENT DATE: 20251015
